FAERS Safety Report 10045113 (Version 2)
Quarter: 2014Q1

REPORT INFORMATION
  Report Type: Report from Study
  Country: MX (occurrence: MX)
  Receive Date: 20140328
  Receipt Date: 20140328
  Transmission Date: 20141002
  Serious: Yes (Hospitalization)
  Sender: FDA-Public Use
  Company Number: MX-ABBVIE-13P-107-1173203-00

PATIENT
  Sex: Female
  Weight: 71 kg

DRUGS (5)
  1. HUMIRA [Suspect]
     Indication: RHEUMATOID ARTHRITIS
     Route: 058
     Dates: start: 2007
  2. METFORMIN [Concomitant]
     Indication: DIABETES MELLITUS
     Route: 048
  3. METHOTREXATE [Concomitant]
     Indication: ARTHRITIS
     Route: 048
  4. PLAQUENIL [Concomitant]
     Indication: ARTHRITIS
     Route: 048
  5. AZULFIDINA [Concomitant]
     Indication: ARTHRITIS
     Route: 048
     Dates: start: 20140118

REACTIONS (1)
  - Carpal tunnel syndrome [Recovering/Resolving]
